FAERS Safety Report 11499812 (Version 3)
Quarter: 2015Q4

REPORT INFORMATION
  Report Type: Spontaneous
  Country: US (occurrence: US)
  Receive Date: 20150914
  Receipt Date: 20151008
  Transmission Date: 20160304
  Serious: Yes (Death, Life-Threatening, Hospitalization, Other)
  Sender: FDA-Public Use
  Company Number: US-BEH-2015053912

PATIENT
  Age: 80 Year
  Sex: Male

DRUGS (16)
  1. ALBUMINAR-25 [Suspect]
     Active Substance: ALBUMIN (HUMAN)
     Dates: start: 20150909
  2. PEPCID [Concomitant]
     Active Substance: FAMOTIDINE
     Dosage: X1 DOSE
     Dates: start: 20150908, end: 20150908
  3. FENTANYL. [Concomitant]
     Active Substance: FENTANYL
     Indication: ENDOTRACHEAL INTUBATION
     Route: 041
     Dates: start: 20150909, end: 20150915
  4. FLAGYL [Concomitant]
     Active Substance: METRONIDAZOLE\METRONIDAZOLE HYDROCHLORIDE
     Dosage: X2 DOSES
     Dates: start: 20150909, end: 20150909
  5. ALBUMINAR-25 [Suspect]
     Active Substance: ALBUMIN (HUMAN)
     Dates: start: 20150909
  6. ALBUMINAR-25 [Suspect]
     Active Substance: ALBUMIN (HUMAN)
     Dosage: 60 ML/HR OR 1 ML/MIN
  7. ENOXAPARIN [Concomitant]
     Active Substance: ENOXAPARIN
     Dosage: X1 DOSE
     Dates: start: 20150908, end: 20150908
  8. ALBUMINAR-25 [Suspect]
     Active Substance: ALBUMIN (HUMAN)
     Dates: start: 20150909
  9. LASIX [Concomitant]
     Active Substance: FUROSEMIDE
     Dosage: X1 DOSE
     Dates: start: 20150909, end: 20150909
  10. ZOSYN [Concomitant]
     Active Substance: PIPERACILLIN SODIUM\TAZOBACTAM SODIUM
     Dates: start: 20150909, end: 20150915
  11. VANCOMYCIN [Concomitant]
     Active Substance: VANCOMYCIN
     Dates: start: 20150908, end: 20150909
  12. CONTRAST MEDIA [Concomitant]
     Active Substance: UNSPECIFIED INGREDIENT
     Dosage: X1 DOSE
     Route: 042
     Dates: start: 20150908, end: 20150908
  13. NOREPINEPHRINE [Concomitant]
     Active Substance: NOREPINEPHRINE\NOREPINEPHRINE BITARTRATE
     Dates: start: 20150909, end: 20150909
  14. LEVOTHYROXINE. [Concomitant]
     Active Substance: LEVOTHYROXINE
     Dates: start: 20150909, end: 20150915
  15. AMIODORONE [Concomitant]
     Active Substance: AMIODARONE
     Dates: start: 20150909, end: 20150912
  16. ALBUMINAR-25 [Suspect]
     Active Substance: ALBUMIN (HUMAN)
     Indication: HYPOALBUMINAEMIA
     Dates: start: 20150909

REACTIONS (5)
  - Ventricular tachycardia [Fatal]
  - Acute respiratory failure [Fatal]
  - Ventricular fibrillation [Unknown]
  - Cardio-respiratory arrest [Fatal]
  - Ventricular fibrillation [Fatal]

NARRATIVE: CASE EVENT DATE: 20150909
